FAERS Safety Report 24828566 (Version 1)
Quarter: 2025Q1

REPORT INFORMATION
  Report Type: Spontaneous
  Country: US (occurrence: US)
  Receive Date: 20250110
  Receipt Date: 20250110
  Transmission Date: 20250408
  Serious: Yes (Other)
  Sender: BRISTOL-MYERS SQUIBB COMPANY
  Company Number: US-BRISTOL-MYERS SQUIBB COMPANY-2025-002942

PATIENT
  Age: 92 Year
  Sex: Female

DRUGS (1)
  1. POMALYST [Suspect]
     Active Substance: POMALIDOMIDE
     Indication: Anaemia
     Dosage: TAKE 1 WHOLE CAPSULE BY MOUTH WITH WATER, 2 HRS AWAY FROM FOOD AT SAME TIME DAILY FOR 14 DAYS THEN T
     Route: 048

REACTIONS (5)
  - Hypokalaemia [Not Recovered/Not Resolved]
  - Fall [Not Recovered/Not Resolved]
  - Asthenia [Not Recovered/Not Resolved]
  - Loss of control of legs [Unknown]
  - Off label use [Unknown]

NARRATIVE: CASE EVENT DATE: 20250107
